FAERS Safety Report 10177398 (Version 2)
Quarter: 2014Q3

REPORT INFORMATION
  Report Type: Spontaneous
  Country: DE (occurrence: DE)
  Receive Date: 20140516
  Receipt Date: 20140701
  Transmission Date: 20150326
  Serious: Yes (Other)
  Sender: FDA-Public Use
  Company Number: DE-BRISTOL-MYERS SQUIBB COMPANY-20726261

PATIENT
  Age: 83 Year
  Sex: Female

DRUGS (7)
  1. MAGNESIUM [Concomitant]
     Active Substance: MAGNESIUM
  2. CALCIUM [Concomitant]
     Active Substance: CALCIUM
  3. METOPROLOL [Concomitant]
     Active Substance: METOPROLOL
     Dosage: HALF AT  MORNING  AND HALF AT EVENING
  4. LANITOP [Concomitant]
     Active Substance: METILDIGOXIN
  5. ELIQUIS [Suspect]
     Active Substance: APIXABAN
     Indication: CEREBROVASCULAR ACCIDENT PROPHYLAXIS
     Dosage: 2.5MG TABS
     Route: 048
     Dates: start: 20140415, end: 20140516
  6. VALSARTAN. [Concomitant]
     Active Substance: VALSARTAN
     Dosage: AT MORNING,EVENING
  7. CARMEN [Concomitant]
     Active Substance: LERCANIDIPINE
     Dosage: AT MORNING,EVENING

REACTIONS (2)
  - Corneal erosion [Recovering/Resolving]
  - Dry eye [Recovering/Resolving]

NARRATIVE: CASE EVENT DATE: 201404
